FAERS Safety Report 4563218-3 (Version None)
Quarter: 2005Q1

REPORT INFORMATION
  Report Type: 
  Country: None (occurrence: None)
  Receive Date: 20050128
  Receipt Date: 20050117
  Transmission Date: 20050727
  Serious: Yes (Other)
  Sender: FDA-Public Use
  Company Number: US-JNJFOC-20050104520

PATIENT
  Age: 44 Year
  Sex: Male

DRUGS (5)
  1. REMICADE [Suspect]
     Route: 042
  2. REMICADE [Suspect]
     Indication: RHEUMATOID ARTHRITIS
     Route: 042
  3. METHOTREXATE [Concomitant]
  4. HYDROXYCHLOROQUINE SULFATE [Concomitant]
  5. NORVASC [Concomitant]

REACTIONS (5)
  - EYE INFECTION VIRAL [None]
  - EYE IRRITATION [None]
  - NASAL CONGESTION [None]
  - SALIVARY GLAND ENLARGEMENT [None]
  - SWELLING FACE [None]
